FAERS Safety Report 17399743 (Version 2)
Quarter: 2020Q1

REPORT INFORMATION
  Report Type: Spontaneous
  Country: DK (occurrence: DK)
  Receive Date: 20200211
  Receipt Date: 20200221
  Transmission Date: 20200409
  Serious: Yes (Other)
  Sender: FDA-Public Use
  Company Number: DK-TEVA-2020-DK-1184158

PATIENT
  Age: 39 Year
  Sex: Female
  Weight: 100 kg

DRUGS (2)
  1. PROMETAZIN ^ACTAVIS^ [Suspect]
     Active Substance: PROMETHAZINE HYDROCHLORIDE
     Indication: SEDATIVE THERAPY
     Dosage: STRENGTH: 25MG
     Route: 048
     Dates: start: 20191106
  2. IBUMETIN [Concomitant]
     Active Substance: IBUPROFEN
     Indication: PAIN
     Dosage: STRENGTH: 400 MG.
     Route: 048
     Dates: start: 20070101

REACTIONS (1)
  - Arrhythmia [Recovering/Resolving]

NARRATIVE: CASE EVENT DATE: 20191106
